FAERS Safety Report 13041514 (Version 1)
Quarter: 2016Q4

REPORT INFORMATION
  Report Type: Spontaneous
  Country: US (occurrence: US)
  Receive Date: 20161219
  Receipt Date: 20161219
  Transmission Date: 20170207
  Serious: No
  Sender: FDA-Public Use
  Company Number: US-ROCHE-1179958

PATIENT
  Age: 51 Year
  Sex: Male

DRUGS (1)
  1. VEMURAFENIB [Suspect]
     Active Substance: VEMURAFENIB
     Indication: METASTATIC MALIGNANT MELANOMA
     Route: 065
     Dates: start: 201110

REACTIONS (3)
  - Hidradenitis [Recovered/Resolved]
  - Melanocytic naevus [Not Recovered/Not Resolved]
  - Keratosis pilaris [Recovered/Resolved]
